FAERS Safety Report 15691101 (Version 2)
Quarter: 2018Q4

REPORT INFORMATION
  Report Type: Spontaneous
  Country: CZ (occurrence: CZ)
  Receive Date: 20181205
  Receipt Date: 20181206
  Transmission Date: 20190205
  Serious: Yes (Other)
  Sender: FDA-Public Use
  Company Number: CZ-SA-2018SA329742

PATIENT
  Sex: Female

DRUGS (3)
  1. HYDROCORTISONE BUTYRATE. [Suspect]
     Active Substance: HYDROCORTISONE BUTYRATE
  2. MOMETASONE FUROATE. [Suspect]
     Active Substance: MOMETASONE FUROATE
     Route: 003
  3. TRIAMCINOLON E [Suspect]
     Active Substance: CHLOROXINE\TRIAMCINOLONE ACETONIDE

REACTIONS (6)
  - Application site erythema [Unknown]
  - Skin infection [Recovering/Resolving]
  - Fungal infection [Not Recovered/Not Resolved]
  - Localised infection [Recovered/Resolved with Sequelae]
  - Skin burning sensation [Unknown]
  - Contraindicated product prescribed [Recovered/Resolved with Sequelae]

NARRATIVE: CASE EVENT DATE: 2018
